FAERS Safety Report 18379808 (Version 1)
Quarter: 2020Q4

REPORT INFORMATION
  Report Type: Spontaneous
  Country: ES (occurrence: ES)
  Receive Date: 20201014
  Receipt Date: 20201014
  Transmission Date: 20210114
  Serious: Yes (Other)
  Sender: FDA-Public Use
  Company Number: ES-PFIZER INC-2020392145

PATIENT
  Age: 55 Year
  Sex: Male

DRUGS (6)
  1. MONTELUKAST UR [Suspect]
     Active Substance: MONTELUKAST SODIUM
     Indication: ASTHMA
     Dosage: 10 MG, 1X/DAY
     Route: 048
  2. IBUPROFEN. [Suspect]
     Active Substance: IBUPROFEN
     Dosage: UNK (400 MG)
  3. FLUTICASONE FUROATE [Concomitant]
     Active Substance: FLUTICASONE FUROATE
     Indication: ASTHMA
     Dosage: UNK
  4. ALPRAZOLAM. [Suspect]
     Active Substance: ALPRAZOLAM
     Indication: ANXIETY
     Dosage: UNK (0.5 MG)
  5. METAMIZOLE [Suspect]
     Active Substance: METAMIZOLE
     Indication: ANXIETY
     Dosage: UNK (575 MG)
  6. VENTOLINE [SALBUTAMOL] [Concomitant]
     Active Substance: ALBUTEROL SULFATE
     Indication: ASTHMA
     Dosage: UNK, AS NEEDED

REACTIONS (10)
  - Dyspnoea [Recovered/Resolved]
  - Joint effusion [Unknown]
  - Drug ineffective [Unknown]
  - Product complaint [Unknown]
  - Productive cough [Recovered/Resolved]
  - Poor quality product administered [Unknown]
  - Back pain [Recovered/Resolved]
  - Chest pain [Recovered/Resolved]
  - Product use issue [Unknown]
  - Expired product administered [Unknown]
